FAERS Safety Report 4609188-0 (Version None)
Quarter: 2005Q1

REPORT INFORMATION
  Report Type: 
  Country: None (occurrence: None)
  Receive Date: 20050314
  Receipt Date: 20050302
  Transmission Date: 20050727
  Serious: Yes (Hospitalization)
  Sender: FDA-Public Use
  Company Number: DE-2005-000600

PATIENT
  Age: 38 Year
  Sex: Female
  Weight: 70 kg

DRUGS (2)
  1. MIRENA [Suspect]
     Indication: CONTRACEPTION
     Dosage: 20 UG/DAY, INTRA-UTERINE
     Route: 015
     Dates: start: 20020426, end: 20050113
  2. CARBIMAZOLE (CARBIMAZOLE) [Concomitant]

REACTIONS (6)
  - ALANINE AMINOTRANSFERASE INCREASED [None]
  - BLOOD BILIRUBIN INCREASED [None]
  - BLOOD IRON INCREASED [None]
  - BLOOD THYROID STIMULATING HORMONE DECREASED [None]
  - GAMMA-GLUTAMYLTRANSFERASE INCREASED [None]
  - LIVER DISORDER [None]
